FAERS Safety Report 18349906 (Version 1)
Quarter: 2020Q4

REPORT INFORMATION
  Report Type: Spontaneous
  Country: US (occurrence: US)
  Receive Date: 20201006
  Receipt Date: 20201006
  Transmission Date: 20210114
  Serious: Yes (Hospitalization)
  Sender: FDA-Public Use
  Company Number: None

PATIENT
  Age: 65 Year
  Sex: Male

DRUGS (13)
  1. HYDROCOCO/APAP TAB 10-325MG [Concomitant]
  2. LOSARTAN POT TAB 50MG [Concomitant]
  3. AMLODIPINE [Concomitant]
     Active Substance: AMLODIPINE BESYLATE
  4. LIDOCAINE OIN 5% [Concomitant]
  5. HYDRALAZINE [Concomitant]
     Active Substance: HYDRALAZINE HYDROCHLORIDE
  6. METHADONE TAB 5MG [Concomitant]
  7. IRBESAR/HCTZ TAB 150-12.5 [Concomitant]
  8. ELIQUIS TAB 5M [Concomitant]
  9. METOPROL TAR TAB 25MG [Concomitant]
  10. LOSARTAN POT TAB 25MG [Concomitant]
  11. CYCLOBEN ZAPR TAB10MG [Concomitant]
  12. PROMACTA [Suspect]
     Active Substance: ELTROMBOPAG OLAMINE
     Route: 048
  13. ACYCLOVIR TAB 400MG [Concomitant]
     Active Substance: ACYCLOVIR

REACTIONS (3)
  - Therapy interrupted [None]
  - Gastric disorder [None]
  - Colitis [None]

NARRATIVE: CASE EVENT DATE: 20200922
